FAERS Safety Report 19480524 (Version 1)
Quarter: 2021Q2

REPORT INFORMATION
  Report Type: Spontaneous
  Country: US (occurrence: US)
  Receive Date: 20210630
  Receipt Date: 20210630
  Transmission Date: 20210717
  Serious: No
  Sender: FDA-Public Use
  Company Number: US-FOUNDATIONCONSUMERHC-2021-US-006596

PATIENT
  Age: 29 Year
  Sex: Female
  Weight: 96.16 kg

DRUGS (5)
  1. MELATONIN [Concomitant]
     Active Substance: MELATONIN
     Dosage: EVERY NIGHT
  2. PROGESTERONE. [Suspect]
     Active Substance: PROGESTERONE
     Dosage: 10MG EVERY DAY FOR 7 DAYS EACH MONTH
  3. PLAN B ONE?STEP [Suspect]
     Active Substance: LEVONORGESTREL
     Indication: POST COITAL CONTRACEPTION
     Dosage: 1.5 MG X 2 DOSES
     Route: 048
     Dates: start: 2017, end: 20210323
  4. MULTIVITAMINS [Concomitant]
     Active Substance: VITAMINS
  5. OVASITOL [Concomitant]

REACTIONS (4)
  - Nausea [Not Recovered/Not Resolved]
  - Fatigue [Not Recovered/Not Resolved]
  - Breast tenderness [Not Recovered/Not Resolved]
  - Dysmenorrhoea [Not Recovered/Not Resolved]

NARRATIVE: CASE EVENT DATE: 20210323
